FAERS Safety Report 14813311 (Version 1)
Quarter: 2018Q2

REPORT INFORMATION
  Report Type: Spontaneous
  Country: FR (occurrence: FR)
  Receive Date: 20180426
  Receipt Date: 20180426
  Transmission Date: 20180711
  Serious: Yes (Death)
  Sender: FDA-Public Use
  Company Number: FR-ROCHE-2113126

PATIENT
  Age: 59 Year
  Sex: Female
  Weight: 78 kg

DRUGS (6)
  1. ESOMEPRAZOLE [Suspect]
     Active Substance: ESOMEPRAZOLE
     Indication: PRODUCT USED FOR UNKNOWN INDICATION
     Route: 048
  2. MABTHERA [Suspect]
     Active Substance: RITUXIMAB
     Indication: THROMBOCYTOPENIA
     Dosage: ON 22/SEP/2017, RECEIVED MOST RECENT DOSE OF RITUXIMAB.
     Route: 041
     Dates: start: 20170907
  3. REVOLADE [Suspect]
     Active Substance: ELTROMBOPAG
     Indication: THROMBOCYTOPENIA
     Dosage: ON 01/MAR/2018, RECEIVED MOST RECENT DOSE OF ELTROMBOPAG OLAMINE.
     Route: 048
     Dates: start: 201608
  4. LYRICA [Concomitant]
     Active Substance: PREGABALIN
     Route: 048
  5. SERESTA [Concomitant]
     Active Substance: OXAZEPAM
     Route: 048
  6. PAROXETINE. [Concomitant]
     Active Substance: PAROXETINE
     Route: 048

REACTIONS (1)
  - Adenocarcinoma gastric [Fatal]

NARRATIVE: CASE EVENT DATE: 201801
